FAERS Safety Report 4937670-5 (Version None)
Quarter: 2006Q1

REPORT INFORMATION
  Report Type: 
  Country: None (occurrence: None)
  Receive Date: 20060306
  Receipt Date: 20060222
  Transmission Date: 20060701
  Serious: Yes (Other)
  Sender: FDA-Public Use
  Company Number: 200514460BCC

PATIENT
  Age: 67 Year
  Sex: Female
  Weight: 63.5036 kg

DRUGS (4)
  1. ALEVE [Suspect]
     Indication: ARTHRALGIA
     Dosage: 220 MG, QD; ORAL
     Route: 048
     Dates: start: 20051006, end: 20051030
  2. ALEVE [Suspect]
     Indication: OEDEMA PERIPHERAL
     Dosage: 220 MG, QD; ORAL
     Route: 048
     Dates: start: 20051006, end: 20051030
  3. SYNTHROID [Concomitant]
  4. ASPIRIN [Concomitant]

REACTIONS (6)
  - ACTIVITIES OF DAILY LIVING IMPAIRED [None]
  - DIFFICULTY IN WALKING [None]
  - IMMUNE SYSTEM DISORDER [None]
  - MOBILITY DECREASED [None]
  - POLYMYALGIA RHEUMATICA [None]
  - ROAD TRAFFIC ACCIDENT [None]
